FAERS Safety Report 19959477 (Version 2)
Quarter: 2023Q1

REPORT INFORMATION
  Report Type: Spontaneous
  Country: GB (occurrence: GB)
  Receive Date: 20211015
  Receipt Date: 20230104
  Transmission Date: 20230418
  Serious: Yes (Other)
  Sender: FDA-Public Use
  Company Number: None

PATIENT
  Age: 62 Year
  Sex: Female
  Weight: 61.68 kg

DRUGS (3)
  1. TOPAMAX [Suspect]
     Active Substance: TOPIRAMATE
     Indication: Migraine
     Dosage: 75MG
     Route: 048
     Dates: start: 20210709, end: 20210827
  2. TOPAMAX [Suspect]
     Active Substance: TOPIRAMATE
     Dosage: DOSE REDUCED TO 25MG BEFORE WITHDRAWING
     Route: 048
  3. SUMATRIPTAN [Concomitant]
     Active Substance: SUMATRIPTAN
     Indication: Migraine
     Route: 065

REACTIONS (7)
  - Arthralgia [Recovered/Resolved]
  - Muscle discomfort [Recovered/Resolved]
  - Feeling of body temperature change [Recovered/Resolved]
  - Formication [Recovered/Resolved]
  - Abnormal sensation in eye [Recovered/Resolved]
  - Nausea [Recovered/Resolved]
  - Vision blurred [Recovered/Resolved]

NARRATIVE: CASE EVENT DATE: 20210715
